FAERS Safety Report 4614087-4 (Version None)
Quarter: 2005Q1

REPORT INFORMATION
  Report Type: 
  Country: None (occurrence: None)
  Receive Date: 20050316
  Receipt Date: 20050303
  Transmission Date: 20050727
  Serious: Yes (Life-Threatening, Hospitalization, Other)
  Sender: FDA-Public Use
  Company Number: 2005JP000462

PATIENT
  Age: 31 Year
  Sex: Female
  Weight: 42.6 kg

DRUGS (14)
  1. TACROLIMUS INJECTION(TACROLIMUS INJECTION) INJECTION [Suspect]
     Indication: LUNG TRANSPLANT
     Dosage: 1.00 MG, INTRAVENOUS; SEE IMAGE
     Route: 042
     Dates: start: 20020831, end: 20020909
  2. TACROLIMUS INJECTION(TACROLIMUS INJECTION) INJECTION [Suspect]
     Indication: LUNG TRANSPLANT
     Dosage: 1.00 MG, INTRAVENOUS; SEE IMAGE
     Route: 042
     Dates: start: 20020909, end: 20020913
  3. TACROLIMUS INJECTION(TACROLIMUS INJECTION) INJECTION [Suspect]
     Indication: LUNG TRANSPLANT
     Dosage: 1.00 MG, INTRAVENOUS; SEE IMAGE
     Route: 042
     Dates: start: 20020914, end: 20020925
  4. TACROLIMUS INJECTION(TACROLIMUS INJECTION) INJECTION [Suspect]
     Indication: LUNG TRANSPLANT
     Dosage: 1.00 MG, INTRAVENOUS; SEE IMAGE
     Route: 042
     Dates: start: 20020926, end: 20021114
  5. TACROLIMUS INJECTION(TACROLIMUS INJECTION) INJECTION [Suspect]
     Indication: LUNG TRANSPLANT
     Dosage: 1.00 MG, INTRAVENOUS; SEE IMAGE
     Route: 042
     Dates: start: 20021115, end: 20030127
  6. TACROLIMUS INJECTION(TACROLIMUS INJECTION) INJECTION [Suspect]
     Indication: LUNG TRANSPLANT
     Dosage: 1.00 MG, INTRAVENOUS; SEE IMAGE
     Route: 042
     Dates: start: 20030128, end: 20030830
  7. TACROLIMUS INJECTION(TACROLIMUS INJECTION) INJECTION [Suspect]
     Indication: LUNG TRANSPLANT
     Dosage: 1.00 MG, INTRAVENOUS; SEE IMAGE
     Route: 042
     Dates: start: 20030831
  8. IMURAN (AZATHIOPRINE) TABLET [Suspect]
     Indication: LUNG TRANSPLANT
     Dosage: ORAL
     Route: 048
     Dates: start: 20020901
  9. METHYLPREDNISOLONE (METHYLPREDNISOLONE) INJECTION [Concomitant]
  10. PREDNISOLONE [Concomitant]
  11. ITRACONAZOLE [Concomitant]
  12. LENDORM [Concomitant]
  13. SULFAMETHOXAZOLE AND TRIMETHOPRIM [Concomitant]
  14. GASTER D (FAMOTIDINE) TABLET [Concomitant]

REACTIONS (6)
  - CYTOMEGALOVIRUS VIRAEMIA [None]
  - HAEMORRHAGE [None]
  - LUNG INFECTION PSEUDOMONAL [None]
  - MENORRHAGIA [None]
  - PNEUMONIA ASPERGILLUS [None]
  - POST PROCEDURAL COMPLICATION [None]
